FAERS Safety Report 5987783-4 (Version None)
Quarter: 2008Q4

REPORT INFORMATION
  Report Type: 
  Country: None (occurrence: None)
  Receive Date: 20081209
  Receipt Date: 20080407
  Transmission Date: 20090506
  Serious: No
  Sender: FDA-Public Use
  Company Number: US-BAYER-200819507NA

PATIENT
  Age: 61 Year
  Sex: Female
  Weight: 75 kg

DRUGS (5)
  1. CLIMARA PRO [Suspect]
     Indication: HORMONE REPLACEMENT THERAPY
     Route: 062
  2. LIPITOR [Concomitant]
     Indication: BLOOD CHOLESTEROL INCREASED
  3. ZYRTEC [Concomitant]
     Indication: MULTIPLE ALLERGIES
  4. ERYMYST NOS [Concomitant]
     Indication: MULTIPLE ALLERGIES
  5. BLOOD PRESSURE MEDICINE NOS [Concomitant]
     Indication: HYPERTENSION

REACTIONS (2)
  - APPLICATION SITE IRRITATION [None]
  - APPLICATION SITE RASH [None]
